FAERS Safety Report 7990037-8 (Version None)
Quarter: 2011Q4

REPORT INFORMATION
  Report Type: 
  Country: None (occurrence: None)
  Receive Date: 20111219
  Receipt Date: 20110418
  Transmission Date: 20120403
  Serious: No
  Sender: FDA-Public Use
  Company Number: US-ASTRAZENECA-2011SE22097

PATIENT
  Sex: Female
  Weight: 72.6 kg

DRUGS (8)
  1. LISINOPRIL AND HYDROCHLOROTHIAZIDE [Suspect]
     Dosage: CUT HER DOSE IN HALF
     Route: 048
     Dates: start: 20110401
  2. LISINOPRIL AND HYDROCHLOROTHIAZIDE [Suspect]
     Dosage: 20/25 MG DAILY
     Route: 048
  3. CALCIUM [Concomitant]
  4. VITAMIN TAB [Concomitant]
  5. CELEBREX [Concomitant]
  6. CRESTOR [Suspect]
     Indication: BLOOD CHOLESTEROL ABNORMAL
     Route: 048
     Dates: start: 20110401
  7. ASPIRIN [Concomitant]
  8. PANTOPRAZOLE [Concomitant]

REACTIONS (2)
  - BLOOD PRESSURE DECREASED [None]
  - DIZZINESS [None]
